FAERS Safety Report 8057356-0 (Version None)
Quarter: 2012Q1

REPORT INFORMATION
  Report Type: 
  Country: None (occurrence: None)
  Receive Date: 20120119
  Receipt Date: 20120116
  Transmission Date: 20120608
  Serious: Yes (Death, Life-Threatening)
  Sender: FDA-Public Use
  Company Number: DE-ASTRAZENECA-2011SE66534

PATIENT
  Sex: Female

DRUGS (5)
  1. HEPARIN [Concomitant]
     Route: 058
     Dates: start: 20111018, end: 20111104
  2. BRILIQUE [Suspect]
     Indication: ACUTE MYOCARDIAL INFARCTION
     Route: 048
     Dates: end: 20111103
  3. ASPIRIN [Concomitant]
     Indication: CORONARY ARTERY DISEASE
     Route: 048
     Dates: end: 20111021
  4. BRILIQUE [Suspect]
     Indication: CORONARY ARTERY DISEASE
     Route: 048
     Dates: end: 20111103
  5. BRILIQUE [Suspect]
     Indication: HYPERTENSION
     Route: 048
     Dates: end: 20111103

REACTIONS (2)
  - CEREBRAL HAEMORRHAGE [None]
  - CARDIAC FAILURE [None]
